FAERS Safety Report 22605030 (Version 9)
Quarter: 2024Q3

REPORT INFORMATION
  Report Type: Spontaneous
  Country: CA (occurrence: CA)
  Receive Date: 20230615
  Receipt Date: 20240910
  Transmission Date: 20241017
  Serious: Yes (Other)
  Sender: PFIZER
  Company Number: CA-PFIZER INC-202300144556

PATIENT
  Age: 50 Year
  Sex: Female

DRUGS (5)
  1. ABRILADA [Suspect]
     Active Substance: ADALIMUMAB-AFZB
     Indication: Crohn^s disease
     Dosage: 160 MG AT WEEK 0, 80 MG AT WEEK 2 AND 40MG EVERY OTHER WEEK BEGINNING AT WEEK 4
     Route: 058
     Dates: start: 20230125
  2. ABRILADA [Suspect]
     Active Substance: ADALIMUMAB-AFZB
     Dosage: 160 MG AT WEEK 0, 80 MG AT WEEK 2 AND 40MG EVERY OTHER WEEK BEGINNING AT WEEK 4
     Route: 058
     Dates: start: 2024
  3. BUDESONIDE [Concomitant]
     Active Substance: BUDESONIDE
     Dosage: 9 MG, FREQUENCY UNKNOWN
  4. ENTOCORT [Concomitant]
     Active Substance: BUDESONIDE
     Dosage: 9 MG, DAILY
     Route: 048
  5. ENTOCORT [Concomitant]
     Active Substance: BUDESONIDE
     Dosage: 1 DF

REACTIONS (16)
  - Rectal fissure [Unknown]
  - Anal fistula [Unknown]
  - Condition aggravated [Not Recovered/Not Resolved]
  - Therapeutic product effect delayed [Unknown]
  - Therapeutic product effect incomplete [Unknown]
  - Mouth ulceration [Not Recovered/Not Resolved]
  - Proctalgia [Unknown]
  - Nausea [Unknown]
  - Fatigue [Not Recovered/Not Resolved]
  - Arthralgia [Not Recovered/Not Resolved]
  - Musculoskeletal stiffness [Unknown]
  - Oedema peripheral [Unknown]
  - Erythema [Unknown]
  - Myalgia [Not Recovered/Not Resolved]
  - Impaired quality of life [Unknown]
  - Off label use [Unknown]

NARRATIVE: CASE EVENT DATE: 20230101
